FAERS Safety Report 6428809-3 (Version None)
Quarter: 2009Q4

REPORT INFORMATION
  Report Type: 
  Country: None (occurrence: None)
  Receive Date: 20091105
  Receipt Date: 20091028
  Transmission Date: 20100525
  Serious: Yes (Disabling)
  Sender: FDA-Public Use
  Company Number: JP-JNJFOC-20091100262

PATIENT
  Sex: Female
  Weight: 60 kg

DRUGS (13)
  1. DOXORUBICIN HCL [Suspect]
     Dosage: COURSE 2
     Route: 042
     Dates: start: 20090731, end: 20090830
  2. DOXORUBICIN HCL [Suspect]
     Indication: OVARIAN CANCER RECURRENT
     Dosage: COURSE 1
     Route: 042
     Dates: start: 20090731, end: 20090830
  3. PICIBANIL [Concomitant]
  4. MINOCYCLINE HCL [Concomitant]
  5. ACTOS [Concomitant]
     Route: 048
  6. AMARYL [Concomitant]
     Route: 048
  7. CALCIUM [Concomitant]
     Route: 048
  8. MS CONTIN [Concomitant]
     Route: 048
  9. MS CONTIN [Concomitant]
     Route: 048
  10. KAMAG G [Concomitant]
     Indication: PROPHYLAXIS
     Route: 048
  11. NOVAMIN [Concomitant]
     Indication: PROPHYLAXIS
     Route: 048
  12. DECADRON [Concomitant]
     Route: 048
  13. NAIXAN [Concomitant]
     Route: 048

REACTIONS (1)
  - RESPIRATORY DISORDER [None]
